FAERS Safety Report 8974136 (Version 4)
Quarter: 2013Q1

REPORT INFORMATION
  Report Type: Spontaneous
  Country: GB (occurrence: None)
  Receive Date: 20121211
  Receipt Date: 20130108
  Transmission Date: 20140127
  Serious: Yes (Death, Life-Threatening)
  Sender: FDA-Public Use
  Company Number: 2012GB0425

PATIENT
  Age: 2 Year
  Sex: Female

DRUGS (4)
  1. ORFADIN [Suspect]
     Indication: TYROSINAEMIA
     Dates: start: 20110714
  2. SYTRON (IRON) [Concomitant]
     Dates: start: 20110714
  3. ABIDEC (MULTI VITAMINS) [Concomitant]
  4. TYGEL (NUTRITIONAL SUPPLEMENT) [Concomitant]

REACTIONS (6)
  - Malaise [None]
  - Hepatoblastoma [None]
  - Gastrointestinal haemorrhage [None]
  - Portal vein thrombosis [None]
  - Metastasis [None]
  - Bleeding varicose vein [None]
